FAERS Safety Report 17900649 (Version 1)
Quarter: 2020Q2

REPORT INFORMATION
  Report Type: Spontaneous
  Country: US (occurrence: US)
  Receive Date: 20200616
  Receipt Date: 20200616
  Transmission Date: 20200714
  Serious: Yes (Life-Threatening, Hospitalization)
  Sender: FDA-Public Use
  Company Number: US-MYLANLABS-2020M1055749

PATIENT
  Age: 71 Year
  Sex: Female

DRUGS (2)
  1. BUPIVACAINE. [Suspect]
     Active Substance: BUPIVACAINE
     Indication: PRODUCT USED FOR UNKNOWN INDICATION
     Route: 037
  2. TRANEXAMIC ACID. [Suspect]
     Active Substance: TRANEXAMIC ACID
     Indication: PRODUCT USED FOR UNKNOWN INDICATION
     Dosage: 300 MILLIGRAM
     Route: 037

REACTIONS (7)
  - Wrong product administered [Recovering/Resolving]
  - Status epilepticus [Recovering/Resolving]
  - Incorrect route of product administration [Recovering/Resolving]
  - Myoclonus [Recovering/Resolving]
  - Gait disturbance [Unknown]
  - Cognitive disorder [Unknown]
  - Spinal disorder [Recovering/Resolving]
